FAERS Safety Report 17869199 (Version 1)
Quarter: 2020Q2

REPORT INFORMATION
  Report Type: Spontaneous
  Country: CA (occurrence: CA)
  Receive Date: 20200608
  Receipt Date: 20200608
  Transmission Date: 20200714
  Serious: Yes (Hospitalization)
  Sender: FDA-Public Use
  Company Number: CA-ROCHE-2612423

PATIENT
  Age: 58 Year
  Sex: Male

DRUGS (9)
  1. CLOBAZAM. [Concomitant]
     Active Substance: CLOBAZAM
     Route: 065
  2. DECADRON [Concomitant]
     Active Substance: DEXAMETHASONE
  3. ETOPOSIDE. [Suspect]
     Active Substance: ETOPOSIDE
     Indication: GLIOBLASTOMA
     Route: 065
  4. NYSTATIN. [Concomitant]
     Active Substance: NYSTATIN
  5. KEPPRA [Concomitant]
     Active Substance: LEVETIRACETAM
     Route: 065
  6. AVASTIN [Suspect]
     Active Substance: BEVACIZUMAB
     Indication: GLIOBLASTOMA
     Route: 042
  7. ASA [Concomitant]
     Active Substance: ASPIRIN
  8. FOSAMAX [Concomitant]
     Active Substance: ALENDRONATE SODIUM
     Route: 065
  9. VITAMIN D [ERGOCALCIFEROL] [Concomitant]
     Active Substance: ERGOCALCIFEROL

REACTIONS (4)
  - Nasopharyngitis [Unknown]
  - Malignant neoplasm progression [Unknown]
  - Seizure [Unknown]
  - Product use in unapproved indication [Unknown]
